FAERS Safety Report 7798434-0 (Version None)
Quarter: 2011Q4

REPORT INFORMATION
  Report Type: 
  Country: None (occurrence: None)
  Receive Date: 20111005
  Receipt Date: 20110922
  Transmission Date: 20120403
  Serious: Yes (Death)
  Sender: FDA-Public Use
  Company Number: JP-ROCHE-802314

PATIENT
  Sex: Male
  Weight: 52 kg

DRUGS (7)
  1. OLMESARTAN MEDOXOMIL [Concomitant]
     Route: 048
  2. URIEF [Concomitant]
     Route: 048
  3. MIRCERA [Suspect]
     Indication: NEPHROGENIC ANAEMIA
     Route: 042
     Dates: start: 20110801, end: 20110801
  4. CALCIUM CARBONATE [Concomitant]
     Route: 048
  5. ADALAT [Concomitant]
     Route: 048
  6. CARVEDILOL [Concomitant]
     Route: 048
  7. CALBLOCK [Concomitant]
     Route: 048

REACTIONS (2)
  - BRAIN STEM HAEMORRHAGE [None]
  - CEREBELLAR HAEMORRHAGE [None]
